FAERS Safety Report 8654450 (Version 2)
Quarter: 2012Q4

REPORT INFORMATION
  Report Type: 
  Country: JP (occurrence: JP)
  Receive Date: 20120709
  Receipt Date: 20120924
  Transmission Date: 20130627
  Serious: Yes (Other)
  Sender: FDA-Public Use
  Company Number: JP-UCBSA-060557

PATIENT
  Age: 60 Year
  Sex: Male

DRUGS (2)
  1. E KEPPRA [Suspect]
     Route: 048
     Dates: start: 2012, end: 201205
  2. DEPAKENE [Suspect]
     Route: 048
     Dates: start: 201205, end: 2012

REACTIONS (3)
  - Rash [Recovering/Resolving]
  - Liver disorder [Recovering/Resolving]
  - Jaundice [Recovering/Resolving]
